FAERS Safety Report 4892875-7 (Version None)
Quarter: 2005Q4

REPORT INFORMATION
  Report Type: 
  Country: None (occurrence: None)
  Receive Date: 20051220
  Receipt Date: 20050923
  Transmission Date: 20060501
  Serious: Yes (Other)
  Sender: FDA-Public Use
  Company Number: 419011

PATIENT
  Age: 62 Year
  Sex: Female
  Weight: 60.8 kg

DRUGS (4)
  1. BONIVA [Suspect]
     Indication: OSTEOPOROSIS
     Dosage: ORAL
     Route: 048
     Dates: start: 20050801
  2. LIPITOR (ATORVASTATIN CLAICUM) [Concomitant]
  3. ZOLOFT [Concomitant]
  4. AMBIEN [Concomitant]

REACTIONS (1)
  - DYSGEUSIA [None]
